FAERS Safety Report 9187443 (Version 1)
Quarter: 2013Q1

REPORT INFORMATION
  Report Type: Spontaneous
  Country: FR (occurrence: FR)
  Receive Date: 20130325
  Receipt Date: 20130325
  Transmission Date: 20140127
  Serious: Yes (Hospitalization)
  Sender: FDA-Public Use
  Company Number: FR-SANOFI-AVENTIS-2013SA027038

PATIENT
  Age: 74 Year
  Sex: Female

DRUGS (3)
  1. RIFADINE [Suspect]
     Indication: MYCOBACTERIAL INFECTION
     Route: 048
     Dates: start: 20121109
  2. CIPROFLOXACIN [Suspect]
     Indication: MYCOBACTERIAL INFECTION
     Route: 048
     Dates: start: 20121108, end: 20121121
  3. CLARITHROMYCIN [Suspect]
     Indication: MYCOBACTERIAL INFECTION
     Route: 048
     Dates: start: 20121108

REACTIONS (2)
  - Epilepsy [Recovered/Resolved]
  - Confusional state [Recovered/Resolved]
